FAERS Safety Report 7522811 (Version 2)
Quarter: 2014Q1

REPORT INFORMATION
  Report Type: Spontaneous
  Country: US (occurrence: US)
  Receive Date: 20100803
  Receipt Date: 20140123
  Transmission Date: 20141002
  Serious: Yes (Other)
  Sender: FDA-Public Use
  Company Number: US-JNJFOC-20100708487

PATIENT
  Age: 53 Year
  Sex: Male
  Weight: 120.66 kg

DRUGS (7)
  1. SANDOZ FENTANYL TRANSDERMAL SYSTEM [Suspect]
     Indication: BACK PAIN
     Route: 062
     Dates: start: 201005
  2. METFORMIN [Concomitant]
     Indication: DIABETES MELLITUS
     Route: 048
     Dates: start: 2004
  3. XANAX [Concomitant]
     Indication: ANXIETY
     Route: 048
     Dates: start: 2000
  4. RESTORIL [Concomitant]
     Indication: SLEEP DISORDER
     Route: 048
     Dates: start: 2003
  5. PERCOCET [Concomitant]
     Indication: PAIN
     Dosage: 2 TABLETS
     Route: 048
  6. NOVOLIN 70/30 [Concomitant]
     Indication: DIABETES MELLITUS
     Route: 050
  7. UNKNOWN MEDICATION [Concomitant]
     Route: 065

REACTIONS (8)
  - Abscess [Recovered/Resolved]
  - Weight decreased [Not Recovered/Not Resolved]
  - Wrong technique in drug usage process [Not Recovered/Not Resolved]
  - Drug effect decreased [Not Recovered/Not Resolved]
  - Blood glucose increased [Not Recovered/Not Resolved]
  - Incorrect drug administration duration [Recovered/Resolved]
  - Product physical issue [Unknown]
  - Product quality issue [Unknown]
